FAERS Safety Report 4277489-4 (Version None)
Quarter: 2004Q1

REPORT INFORMATION
  Report Type: 
  Country: None (occurrence: None)
  Receive Date: 20040122
  Receipt Date: 20040113
  Transmission Date: 20041129
  Serious: Yes (Hospitalization)
  Sender: FDA-Public Use
  Company Number: AU-BRISTOL-MYERS SQUIBB COMPANY-12476370

PATIENT
  Age: 65 Year
  Sex: Male

DRUGS (5)
  1. IFOSFAMIDE [Suspect]
     Indication: LYMPHOMA
     Dates: start: 20031216, end: 20031216
  2. ETOPOSIDE [Suspect]
     Indication: LYMPHOMA
     Dates: start: 20031216, end: 20031216
  3. PEGFILGRASTIM [Suspect]
     Indication: LYMPHOMA
     Dates: start: 20031221, end: 20031221
  4. CYTARABINE [Suspect]
     Indication: LYMPHOMA
     Dates: start: 20031216, end: 20031216
  5. MESNA [Concomitant]
     Indication: PROPHYLAXIS
     Route: 042
     Dates: start: 20031216, end: 20031216

REACTIONS (3)
  - FEBRILE NEUTROPENIA [None]
  - HERPES SIMPLEX [None]
  - SEPSIS [None]
